FAERS Safety Report 9179857 (Version 1)
Quarter: 2012Q4

REPORT INFORMATION
  Report Type: 
  Country: JP (occurrence: JP)
  Receive Date: 20121029
  Receipt Date: 20121029
  Transmission Date: 20130627
  Serious: Yes (Death, Hospitalization)
  Sender: FDA-Public Use
  Company Number: JP-ROCHE-1150061

PATIENT
  Age: 68 Year
  Sex: Female

DRUGS (5)
  1. RITUXIMAB [Suspect]
     Indication: B-CELL LYMPHOMA
     Route: 065
  2. CYCLOPHOSPHAMIDE [Concomitant]
     Indication: B-CELL LYMPHOMA
  3. DOXORUBICIN HYDROCHLORIDE [Concomitant]
     Indication: B-CELL LYMPHOMA
  4. VINCRISTINE SULFATE [Concomitant]
     Indication: B-CELL LYMPHOMA
  5. PREDNISOLONE [Concomitant]
     Indication: B-CELL LYMPHOMA
     Route: 065

REACTIONS (2)
  - Disseminated intravascular coagulation [Fatal]
  - Febrile neutropenia [Not Recovered/Not Resolved]
